FAERS Safety Report 14730575 (Version 1)
Quarter: 2018Q2

REPORT INFORMATION
  Report Type: Spontaneous
  Country: DE (occurrence: DE)
  Receive Date: 20180406
  Receipt Date: 20180406
  Transmission Date: 20180711
  Serious: Yes (Other)
  Sender: FDA-Public Use
  Company Number: DE-UCBSA-2018014877

PATIENT
  Age: 12 Year
  Sex: Male

DRUGS (3)
  1. MEDIKINET [Suspect]
     Active Substance: METHYLPHENIDATE
     Indication: PRODUCT USED FOR UNKNOWN INDICATION
     Dosage: 20 MG, UNK
  2. METHYLPHENIDATE HYDROCHLORIDE. [Suspect]
     Active Substance: METHYLPHENIDATE HYDROCHLORIDE
     Indication: PRODUCT USED FOR UNKNOWN INDICATION
     Dosage: UNK
  3. MEDIKINET [Suspect]
     Active Substance: METHYLPHENIDATE
     Dosage: 30 MG, UNK

REACTIONS (4)
  - Hyperventilation [Recovered/Resolved]
  - Alopecia [Unknown]
  - Panic attack [Recovered/Resolved]
  - Gynaecomastia [Not Recovered/Not Resolved]
